FAERS Safety Report 7211388-0 (Version None)
Quarter: 2010Q4

REPORT INFORMATION
  Report Type: 
  Country: None (occurrence: None)
  Receive Date: 20101223
  Receipt Date: 20101214
  Transmission Date: 20110411
  Serious: Yes (Hospitalization)
  Sender: FDA-Public Use
  Company Number: 023728

PATIENT
  Age: 29 Year
  Sex: Female

DRUGS (1)
  1. CIMZIA [Suspect]
     Indication: CROHN'S DISEASE
     Dosage: SUBCUTANEOUS
     Route: 058
     Dates: start: 20091101

REACTIONS (4)
  - ALOPECIA [None]
  - DERMATITIS CONTACT [None]
  - OFF LABEL USE [None]
  - PSORIASIS [None]
